FAERS Safety Report 7544433-3 (Version None)
Quarter: 2011Q2

REPORT INFORMATION
  Report Type: 
  Country: None (occurrence: None)
  Receive Date: 20110613
  Receipt Date: 20091029
  Transmission Date: 20111010
  Serious: Yes (Hospitalization, Disabling, Other)
  Sender: FDA-Public Use
  Company Number: PHHY2009SI47373

PATIENT
  Sex: Male
  Weight: 65 kg

DRUGS (9)
  1. EFLORAN [Concomitant]
  2. LANITOP [Concomitant]
  3. ALLOPURINOL [Concomitant]
  4. EDEMID [Concomitant]
  5. ASPIRIN [Concomitant]
  6. EXJADE [Suspect]
     Dosage: 1000 MG DAILY
     Route: 048
     Dates: start: 20090729
  7. TRAMADOL HCL [Concomitant]
  8. NOLIPREL [Concomitant]
  9. EXJADE [Suspect]
     Indication: MYELODYSPLASTIC SYNDROME
     Dosage: 150 MG, QD
     Route: 048
     Dates: start: 20090326

REACTIONS (2)
  - GANGRENE [None]
  - WEIGHT DECREASED [None]
